FAERS Safety Report 9053432 (Version 1)
Quarter: 2013Q1

REPORT INFORMATION
  Report Type: Spontaneous
  Country: FR (occurrence: None)
  Receive Date: 20130116
  Receipt Date: 20130116
  Transmission Date: 20140127
  Serious: Yes (Other)
  Sender: FDA-Public Use
  Company Number: 220039

PATIENT
  Age: 61 Year
  Sex: Female

DRUGS (6)
  1. INNOHEP [Suspect]
     Indication: THROMBOSIS
     Route: 058
     Dates: start: 2009
  2. INNOHEP [Suspect]
     Indication: LUNG NEOPLASM MALIGNANT
     Route: 058
     Dates: start: 2009
  3. INNOHEP [Suspect]
     Indication: PULMONARY EMBOLISM
     Route: 058
     Dates: start: 2009
  4. INNOHEP [Suspect]
     Indication: LUNG NEOPLASM MALIGNANT
     Route: 058
     Dates: start: 2009
  5. VITAMIN D(ERGOCALCIFEROL) [Concomitant]
  6. FOSAVANCE + CALCIUM(FOSAVANCE) [Concomitant]

REACTIONS (7)
  - Osteoporosis [None]
  - Hip fracture [None]
  - Mobility decreased [None]
  - Confusional state [None]
  - Incorrect drug administration duration [None]
  - Platelet count decreased [None]
  - Condition aggravated [None]
